FAERS Safety Report 6428814-7 (Version None)
Quarter: 2009Q4

REPORT INFORMATION
  Report Type: 
  Country: None (occurrence: None)
  Receive Date: 20091105
  Receipt Date: 20091028
  Transmission Date: 20100525
  Serious: Yes (Other)
  Sender: FDA-Public Use
  Company Number: CHPA2009DE21388

PATIENT
  Sex: Female

DRUGS (1)
  1. NICOTINELL TTS (NCH) [Suspect]
     Dosage: 21 MG, QD
     Route: 062

REACTIONS (3)
  - CARDIOVASCULAR DISORDER [None]
  - ERYTHEMA [None]
  - PALPITATIONS [None]
